FAERS Safety Report 24683415 (Version 1)
Quarter: 2024Q4

REPORT INFORMATION
  Report Type: Spontaneous
  Country: AU (occurrence: AU)
  Receive Date: 20241201
  Receipt Date: 20241201
  Transmission Date: 20250114
  Serious: Yes (Other)
  Sender: AMGEN
  Company Number: AU-Vifor (International) Inc.-VIT-2024-10977

PATIENT
  Sex: Female

DRUGS (1)
  1. TAVNEOS [Suspect]
     Active Substance: AVACOPAN
     Indication: Product used for unknown indication
     Dosage: 30 MG BD FOR 6 WEEKS
     Route: 065

REACTIONS (2)
  - Hepatitis [Unknown]
  - Alanine aminotransferase increased [Unknown]
